FAERS Safety Report 5684349-0 (Version None)
Quarter: 2008Q1

REPORT INFORMATION
  Report Type: 
  Country: None (occurrence: None)
  Receive Date: 20080328
  Receipt Date: 20080325
  Transmission Date: 20080703
  Serious: Yes (Hospitalization)
  Sender: FDA-Public Use
  Company Number: B0511995A

PATIENT
  Age: 58 Year
  Sex: Female

DRUGS (7)
  1. VALTREX [Suspect]
     Indication: HERPES ZOSTER
     Dosage: 1000MG THREE TIMES PER DAY
     Route: 048
     Dates: start: 20080222, end: 20080228
  2. LOXONIN [Suspect]
     Indication: BACK PAIN
     Dosage: 120MG PER DAY
     Route: 048
     Dates: start: 20080301, end: 20080306
  3. CALONAL [Concomitant]
     Indication: HERPES ZOSTER
     Dates: start: 20080222, end: 20080223
  4. SELBEX [Concomitant]
     Indication: DRUG USE FOR UNKNOWN INDICATION
     Route: 048
     Dates: start: 20080301, end: 20080306
  5. VITAMEDIN [Concomitant]
     Indication: NEUROPATHY PERIPHERAL
     Dosage: .75MG PER DAY
     Route: 048
     Dates: start: 20080301, end: 20080306
  6. FENAZOL [Concomitant]
     Indication: HERPES ZOSTER
     Dosage: 1G PER DAY
     Route: 061
     Dates: start: 20080222, end: 20080229
  7. TRETINOIN TOCOFERIL [Concomitant]
     Indication: SKIN ULCER
     Dosage: 1G PER DAY
     Route: 061
     Dates: start: 20080301, end: 20080307

REACTIONS (7)
  - BACK PAIN [None]
  - C-REACTIVE PROTEIN INCREASED [None]
  - CHROMATURIA [None]
  - INFECTION [None]
  - LIVER DISORDER [None]
  - NEUROPATHY PERIPHERAL [None]
  - PYREXIA [None]
